FAERS Safety Report 8201256-X (Version None)
Quarter: 2012Q1

REPORT INFORMATION
  Report Type: 
  Country: None (occurrence: None)
  Receive Date: 20120312
  Receipt Date: 20120306
  Transmission Date: 20120608
  Serious: Yes (Other)
  Sender: FDA-Public Use
  Company Number: PHHY2012DE019951

PATIENT
  Sex: Female

DRUGS (1)
  1. ESTRADERM [Suspect]
     Dosage: 25UG EVERY 3 OR 4 DAYS
     Route: 062
     Dates: start: 20090101

REACTIONS (1)
  - NEOPLASM OF CORNEA UNSPECIFIED MALIGNANCY [None]
